FAERS Safety Report 10250931 (Version 2)
Quarter: 2014Q4

REPORT INFORMATION
  Report Type: Spontaneous
  Country: GR (occurrence: GR)
  Receive Date: 20140620
  Receipt Date: 20141010
  Transmission Date: 20150528
  Serious: Yes (Other)
  Sender: FDA-Public Use
  Company Number: GR-US-EMD SERONO, INC.-7299305

PATIENT
  Age: 40 Year
  Sex: Female
  Weight: 70 kg

DRUGS (3)
  1. REBIF [Suspect]
     Active Substance: INTERFERON BETA-1A
     Route: 058
     Dates: start: 20121201, end: 20140228
  2. VALTREX [Suspect]
     Active Substance: VALACYCLOVIR HYDROCHLORIDE
     Indication: HERPES ZOSTER
     Route: 048
     Dates: start: 20140101, end: 201405
  3. REBIF [Suspect]
     Active Substance: INTERFERON BETA-1A
     Indication: MULTIPLE SCLEROSIS
     Route: 058
     Dates: start: 20140301

REACTIONS (6)
  - Neutropenia [Recovered/Resolved]
  - Drug interaction [Unknown]
  - Lymphocyte percentage increased [Recovered/Resolved]
  - Herpes zoster [Recovering/Resolving]
  - Leukopenia [Recovered/Resolved]
  - Monocyte percentage increased [Recovered/Resolved]

NARRATIVE: CASE EVENT DATE: 20140101
